FAERS Safety Report 4828702-3 (Version None)
Quarter: 2005Q4

REPORT INFORMATION
  Report Type: 
  Country: None (occurrence: None)
  Receive Date: 20051115
  Receipt Date: 20050406
  Transmission Date: 20060501
  Serious: Yes (Hospitalization)
  Sender: FDA-Public Use
  Company Number: US-MERCK-0504USA01011

PATIENT
  Age: 63 Year
  Sex: Male
  Weight: 75 kg

DRUGS (5)
  1. VIOXX [Suspect]
     Indication: BACK PAIN
     Route: 048
     Dates: start: 20010101, end: 20020801
  2. VIOXX [Suspect]
     Route: 048
     Dates: start: 20010101, end: 20020801
  3. VIOXX [Suspect]
     Route: 048
     Dates: start: 20020801, end: 20020906
  4. VIOXX [Suspect]
     Route: 048
     Dates: start: 20020801, end: 20020906
  5. SINEMET [Concomitant]
     Route: 048

REACTIONS (2)
  - HEADACHE [None]
  - MYOCARDIAL INFARCTION [None]
